FAERS Safety Report 8750179 (Version 2)
Quarter: 2012Q4

REPORT INFORMATION
  Report Type: Spontaneous
  Country: US (occurrence: None)
  Receive Date: 20120809
  Receipt Date: 20120911
  Transmission Date: 20130627
  Serious: Yes (Other)
  Sender: FDA-Public Use
  Company Number: 2012HGS-003845

PATIENT
  Age: 48 Year
  Sex: Female
  Weight: 113.4 kg

DRUGS (17)
  1. BENLYSTA [Suspect]
     Indication: SYSTEMIC LUPUS ERYTHEMATOSUS
     Dosage: 1 IN 28 D
     Route: 041
     Dates: start: 20110801
  2. BENLYSTA [Suspect]
     Indication: SYSTEMIC LUPUS ERYTHEMATOSUS
     Dosage: 1 IN 28 D, INTRAVENOUS DRIP
     Dates: start: 20120718
  3. AMITRIPTYLINE (AMITRIPTYLINE) [Concomitant]
  4. CARDIZEM [Concomitant]
  5. VOLTAREN [Concomitant]
  6. LASIX [Concomitant]
  7. PLAQUENIL [Concomitant]
  8. POTASSIUM (POTASSIUM) [Concomitant]
  9. PREDNISONE [Concomitant]
  10. PROTONIX [Concomitant]
  11. RESTASIS [Concomitant]
  12. TRAMADOL HYDROCHLORIDE [Concomitant]
  13. FLEXERIL [Concomitant]
  14. NORCO (VICODIN) (PARACETAMOL, HYDROCODONE BITARTRATE) [Concomitant]
  15. FENTANYL [Concomitant]
  16. FORTEO [Concomitant]
  17. TOPAMAX [Concomitant]

REACTIONS (1)
  - Latent tuberculosis [None]
